FAERS Safety Report 14559845 (Version 1)
Quarter: 2018Q1

REPORT INFORMATION
  Report Type: Spontaneous
  Country: US (occurrence: US)
  Receive Date: 20180220
  Receipt Date: 20180220
  Transmission Date: 20180509
  Serious: Yes (Life-Threatening, Hospitalization, Disabling)
  Sender: FDA-Public Use
  Company Number: None

PATIENT
  Sex: Female

DRUGS (2)
  1. PLAQUENIL [Suspect]
     Active Substance: HYDROXYCHLOROQUINE SULFATE
     Indication: PUSTULAR PSORIASIS
  2. IMURAN [Suspect]
     Active Substance: AZATHIOPRINE
     Indication: PUSTULAR PSORIASIS

REACTIONS (2)
  - Hypersensitivity [None]
  - Pancreatitis [None]
